FAERS Safety Report 21650183 (Version 1)
Quarter: 2022Q4

REPORT INFORMATION
  Report Type: Spontaneous
  Country: US (occurrence: US)
  Receive Date: 20221128
  Receipt Date: 20221128
  Transmission Date: 20230113
  Serious: Yes (Other)
  Sender: FDA-Public Use
  Company Number: US-BAYER-2022A160465

PATIENT
  Age: 42 Year
  Sex: Male

DRUGS (1)
  1. AFRIN NO DRIP SEVERE CONGESTION [Suspect]
     Active Substance: OXYMETAZOLINE HYDROCHLORIDE
     Dosage: 4 TIMES
     Route: 055
     Dates: start: 20221110

REACTIONS (3)
  - Drug dependence [Not Recovered/Not Resolved]
  - Product use issue [None]
  - Extra dose administered [None]
